FAERS Safety Report 7786759-4 (Version None)
Quarter: 2011Q3

REPORT INFORMATION
  Report Type: 
  Country: None (occurrence: None)
  Receive Date: 20110929
  Receipt Date: 20110926
  Transmission Date: 20111222
  Serious: No
  Sender: FDA-Public Use
  Company Number: US-BAYER-2011-091853

PATIENT
  Age: 57 Year
  Sex: Female

DRUGS (2)
  1. NEXAVAR [Suspect]
     Dosage: 400 MG, BID
     Dates: start: 20110628
  2. NEXAVAR [Suspect]
     Dosage: 200 MG, QD
     Dates: start: 20110801, end: 20110901

REACTIONS (4)
  - STOMATITIS [None]
  - DIARRHOEA [None]
  - RASH ERYTHEMATOUS [None]
  - ALOPECIA [None]
